FAERS Safety Report 17729072 (Version 1)
Quarter: 2020Q2

REPORT INFORMATION
  Report Type: Spontaneous
  Country: US (occurrence: US)
  Receive Date: 20200430
  Receipt Date: 20200430
  Transmission Date: 20200714
  Serious: Yes (Disabling)
  Sender: FDA-Public Use
  Company Number: None

PATIENT
  Age: 24 Month
  Sex: Male

DRUGS (1)
  1. MIRALAX [Suspect]
     Active Substance: POLYETHYLENE GLYCOL 3350
     Indication: CONSTIPATION
     Route: 048

REACTIONS (5)
  - Affective disorder [None]
  - Therapy non-responder [None]
  - Selective mutism [None]
  - Attention deficit hyperactivity disorder [None]
  - Sleep terror [None]

NARRATIVE: CASE EVENT DATE: 20110611
